FAERS Safety Report 9737116 (Version 2)
Quarter: 2014Q1

REPORT INFORMATION
  Report Type: Spontaneous
  Country: US (occurrence: US)
  Receive Date: 20131206
  Receipt Date: 20140204
  Transmission Date: 20141002
  Serious: No
  Sender: FDA-Public Use
  Company Number: US-009507513-1310USA008350

PATIENT
  Age: 22 Year
  Sex: Female
  Weight: 109.3 kg

DRUGS (1)
  1. IMPLANON [Suspect]
     Indication: CONTRACEPTION
     Dosage: 68 MG/3 YEARS
     Route: 059
     Dates: start: 2010, end: 20131017

REACTIONS (5)
  - Device difficult to use [Recovered/Resolved]
  - Medical device complication [Recovered/Resolved]
  - Implant site scar [Unknown]
  - Amenorrhoea [Unknown]
  - Device dislocation [Recovered/Resolved]
